FAERS Safety Report 12810289 (Version 1)
Quarter: 2016Q4

REPORT INFORMATION
  Report Type: Spontaneous
  Country: US (occurrence: US)
  Receive Date: 20161004
  Receipt Date: 20161004
  Transmission Date: 20170207
  Serious: Yes (Other)
  Sender: FDA-Public Use
  Company Number: None

PATIENT
  Age: 59 Year
  Sex: Female

DRUGS (6)
  1. REBIF [Concomitant]
     Active Substance: INTERFERON BETA-1A
  2. CITALOPRAM [Concomitant]
     Active Substance: CITALOPRAM HYDROBROMIDE
  3. TIZANIDINE. [Concomitant]
     Active Substance: TIZANIDINE
  4. OXYBUTYNIN [Concomitant]
     Active Substance: OXYBUTYNIN
  5. AMPYRA [Suspect]
     Active Substance: DALFAMPRIDINE
     Indication: MULTIPLE SCLEROSIS
     Route: 048
     Dates: start: 201204
  6. NAPROXEN. [Concomitant]
     Active Substance: NAPROXEN

REACTIONS (4)
  - Pollakiuria [None]
  - Dysuria [None]
  - Urine odour abnormal [None]
  - Urine abnormality [None]

NARRATIVE: CASE EVENT DATE: 20160816
